FAERS Safety Report 17290913 (Version 2)
Quarter: 2020Q1

REPORT INFORMATION
  Report Type: Spontaneous
  Country: US (occurrence: US)
  Receive Date: 20200121
  Receipt Date: 20200213
  Transmission Date: 20200409
  Serious: Yes (Other)
  Sender: FDA-Public Use
  Company Number: US-BAYER-2019-220829

PATIENT
  Age: 33 Year
  Sex: Female
  Weight: 52.6 kg

DRUGS (4)
  1. THERAGRAN-NV [Concomitant]
     Route: 048
  2. MIRENA [Suspect]
     Active Substance: LEVONORGESTREL
     Indication: CONTRACEPTION
     Dosage: 20 MCG/24HR, CONT
     Route: 015
     Dates: start: 20180807, end: 20191122
  3. SERTRALINE [Concomitant]
     Active Substance: SERTRALINE HYDROCHLORIDE
     Route: 048
  4. OMEGA 3 + OMEGA 6 + OMEGA 9 [Concomitant]
     Route: 048

REACTIONS (8)
  - Device dislocation [Recovered/Resolved]
  - Urinary tract disorder [None]
  - Depressed mood [None]
  - Fatigue [None]
  - Menometrorrhagia [None]
  - Device issue [None]
  - Asthenia [None]
  - Anxiety [None]

NARRATIVE: CASE EVENT DATE: 20191122
